FAERS Safety Report 7244914-6 (Version None)
Quarter: 2011Q1

REPORT INFORMATION
  Report Type: 
  Country: None (occurrence: None)
  Receive Date: 20110126
  Receipt Date: 20110111
  Transmission Date: 20110831
  Serious: Yes (Death)
  Sender: FDA-Public Use
  Company Number: US-CELGENEUS-163-21880-11010997

PATIENT
  Sex: Female
  Weight: 68 kg

DRUGS (2)
  1. REVLIMID [Suspect]
     Indication: MYELODYSPLASTIC SYNDROME
     Route: 048
     Dates: start: 20100928, end: 20101001
  2. EXJADE [Concomitant]
     Indication: IRON OVERLOAD
     Route: 065
     Dates: start: 20100708, end: 20101203

REACTIONS (1)
  - MYELODYSPLASTIC SYNDROME [None]
